FAERS Safety Report 15246435 (Version 2)
Quarter: 2018Q3

REPORT INFORMATION
  Report Type: Spontaneous
  Country: ES (occurrence: ES)
  Receive Date: 20180806
  Receipt Date: 20180813
  Transmission Date: 20181010
  Serious: Yes (Death)
  Sender: FDA-Public Use
  Company Number: ES-PFIZER INC-2018309469

PATIENT
  Age: 42 Year
  Sex: Male

DRUGS (11)
  1. ETOPOSIDE. [Suspect]
     Active Substance: ETOPOSIDE
     Indication: DYSPLASIA
  2. GEMCITABINE HYDROCHLORIDE. [Suspect]
     Active Substance: GEMCITABINE HYDROCHLORIDE
     Indication: LUNG NEOPLASM MALIGNANT
     Dosage: UNK, CYCLIC (4 CYCLES)
     Dates: start: 2012
  3. IDARUBICIN HCL [Suspect]
     Active Substance: IDARUBICIN HYDROCHLORIDE
     Indication: DYSPLASIA
  4. ETOPOSIDE. [Suspect]
     Active Substance: ETOPOSIDE
     Indication: ACUTE MYELOMONOCYTIC LEUKAEMIA
     Dosage: UNK, CYCLIC (INTENSIVE CHEMOTHERAPY)
     Dates: start: 2001
  5. MITOXANTRONE [Suspect]
     Active Substance: MITOXANTRONE HYDROCHLORIDE
     Indication: ACUTE MYELOMONOCYTIC LEUKAEMIA
     Dosage: UNK, CYCLIC (CONSOLIDATION CHEMOTHERAPY)
     Dates: start: 2001
  6. CISPLATIN. [Suspect]
     Active Substance: CISPLATIN
     Indication: LUNG NEOPLASM MALIGNANT
     Dosage: UNK, CYCLIC (4 CYCLES)
     Dates: start: 2012
  7. CYTARABINE. [Suspect]
     Active Substance: CYTARABINE
     Indication: DYSPLASIA
     Dosage: UNK, CYCLIC (CONSOLIDATION CHEMOTHERAPY)
     Dates: start: 2001
  8. CYCLOPHOSPHAMIDE. [Concomitant]
     Active Substance: CYCLOPHOSPHAMIDE
     Dosage: UNK
     Dates: start: 2001
  9. MITOXANTRONE [Suspect]
     Active Substance: MITOXANTRONE HYDROCHLORIDE
     Indication: DYSPLASIA
  10. CYTARABINE. [Suspect]
     Active Substance: CYTARABINE
     Indication: ACUTE MYELOMONOCYTIC LEUKAEMIA
     Dosage: UNK, CYCLIC (INTENSIVE CHEMOTHERAPY)
     Dates: start: 2001
  11. IDARUBICIN HCL [Suspect]
     Active Substance: IDARUBICIN HYDROCHLORIDE
     Indication: ACUTE MYELOMONOCYTIC LEUKAEMIA
     Dosage: UNK, CYCLIC (INTENSIVE CHEMOTHERAPY)
     Dates: start: 2001

REACTIONS (2)
  - Refractory anaemia with an excess of blasts [Fatal]
  - Second primary malignancy [Fatal]
